FAERS Safety Report 8528336-3 (Version None)
Quarter: 2012Q3

REPORT INFORMATION
  Report Type: 
  Country: None (occurrence: None)
  Receive Date: 20120722
  Receipt Date: 20120716
  Transmission Date: 20120928
  Serious: Yes (Death, Other)
  Sender: FDA-Public Use
  Company Number: NO-009507513-1207NOR004539

PATIENT

DRUGS (1)
  1. CARBIDOPA AND LEVODOPA [Suspect]
     Dates: start: 20060101, end: 20100101

REACTIONS (5)
  - CEREBROVASCULAR ACCIDENT [None]
  - OVERDOSE [None]
  - MENTAL DISORDER [None]
  - GASTRITIS [None]
  - DEVICE DISLOCATION [None]
